FAERS Safety Report 4518224-1 (Version None)
Quarter: 2004Q4

REPORT INFORMATION
  Report Type: 
  Country: None (occurrence: None)
  Receive Date: 20041130
  Receipt Date: 20041115
  Transmission Date: 20050328
  Serious: Yes (Other)
  Sender: FDA-Public Use
  Company Number: USA041080051

PATIENT
  Age: 19 Year
  Sex: Female
  Weight: 70 kg

DRUGS (1)
  1. STRATTERA [Suspect]
     Indication: ATTENTION DEFICIT/HYPERACTIVITY DISORDER
     Dosage: 25 MG DAY
     Dates: start: 20040917, end: 20041001

REACTIONS (2)
  - DILATATION ATRIAL [None]
  - TACHYCARDIA [None]
